FAERS Safety Report 18006229 (Version 2)
Quarter: 2020Q3

REPORT INFORMATION
  Report Type: Report from Study
  Country: US (occurrence: US)
  Receive Date: 20200710
  Receipt Date: 20200817
  Transmission Date: 20201103
  Serious: No
  Sender: FDA-Public Use
  Company Number: US-INCYTE CORPORATION-2020IN005083

PATIENT

DRUGS (10)
  1. PROLIA [Concomitant]
     Active Substance: DENOSUMAB
     Indication: PRODUCT USED FOR UNKNOWN INDICATION
     Dosage: INJECTION EVERY 6  MONTHS
     Route: 065
  2. PROPRANOLOL [Concomitant]
     Active Substance: PROPRANOLOL HYDROCHLORIDE
     Indication: PRODUCT USED FOR UNKNOWN INDICATION
     Route: 065
  3. ASPIRIN [ACETYLSALICYLIC ACID] [Concomitant]
     Active Substance: ASPIRIN
     Indication: PRODUCT USED FOR UNKNOWN INDICATION
     Route: 065
  4. PANTOPRAZOLE [Concomitant]
     Active Substance: PANTOPRAZOLE
     Indication: PRODUCT USED FOR UNKNOWN INDICATION
     Route: 065
  5. JAKAFI [Suspect]
     Active Substance: RUXOLITINIB
     Indication: POLYCYTHAEMIA VERA
     Dosage: 10 MILLIGRAM, BID (2 TABLETS PER DAY)
     Route: 048
     Dates: start: 20200515, end: 20200522
  6. JAKAFI [Suspect]
     Active Substance: RUXOLITINIB
     Dosage: 20 MG IN THE MORNING, 10 MG IN THE EVENING (3 TABLETS PER DAY)
     Route: 048
     Dates: start: 20200522
  7. JAKAFI [Suspect]
     Active Substance: RUXOLITINIB
     Dosage: 20MG AM, 10MG PM
     Route: 048
  8. LISINOPRIL. [Concomitant]
     Active Substance: LISINOPRIL
     Indication: PRODUCT USED FOR UNKNOWN INDICATION
     Route: 065
  9. MULTIVITAMINS [VITAMINS NOS] [Concomitant]
     Active Substance: VITAMINS
     Indication: PRODUCT USED FOR UNKNOWN INDICATION
     Route: 065
  10. CALCIUM [Concomitant]
     Active Substance: CALCIUM
     Indication: PRODUCT USED FOR UNKNOWN INDICATION
     Route: 065

REACTIONS (3)
  - Arthropod bite [Unknown]
  - Contusion [Unknown]
  - Platelet count abnormal [Recovered/Resolved]

NARRATIVE: CASE EVENT DATE: 20200522
